FAERS Safety Report 6755278-6 (Version None)
Quarter: 2010Q2

REPORT INFORMATION
  Report Type: 
  Country: None (occurrence: None)
  Receive Date: 20100602
  Receipt Date: 20100519
  Transmission Date: 20101027
  Serious: Yes (Hospitalization)
  Sender: FDA-Public Use
  Company Number: 1000014119

PATIENT
  Age: 47 Year
  Sex: Female

DRUGS (2)
  1. ESCITALOPRAM [Suspect]
     Indication: DEPRESSION
     Dosage: ONCE, ORAL
     Route: 048
  2. CHLORPROTHIXENE [Concomitant]

REACTIONS (5)
  - BLOOD CREATINE PHOSPHOKINASE DECREASED [None]
  - CONFUSIONAL STATE [None]
  - DRUG ABUSE [None]
  - INTENTIONAL OVERDOSE [None]
  - SOMNOLENCE [None]
